FAERS Safety Report 6288255-2 (Version None)
Quarter: 2009Q3

REPORT INFORMATION
  Report Type: 
  Country: None (occurrence: None)
  Receive Date: 20090723
  Receipt Date: 20090609
  Transmission Date: 20100115
  Serious: No
  Sender: FDA-Public Use
  Company Number: PYLE-2009-006 F-UP#1

PATIENT
  Age: 59 Year
  Sex: Female

DRUGS (3)
  1. PYLERA [Suspect]
     Indication: HELICOBACTER INFECTION
     Dosage: PO
     Route: 048
     Dates: start: 20090225, end: 20090306
  2. SYNTHROID [Concomitant]
  3. PROTONIX [Concomitant]

REACTIONS (1)
  - PERIPHERAL SENSORIMOTOR NEUROPATHY [None]
